FAERS Safety Report 8247004-9 (Version None)
Quarter: 2012Q1

REPORT INFORMATION
  Report Type: 
  Country: None (occurrence: None)
  Receive Date: 20120330
  Receipt Date: 20120330
  Transmission Date: 20120608
  Serious: No
  Sender: FDA-Public Use
  Company Number: None

PATIENT
  Age: 3 Year
  Sex: Female
  Weight: 14.968 kg

DRUGS (2)
  1. XOPENEX HFA [Suspect]
     Indication: BRONCHIAL HYPERREACTIVITY
     Dosage: 1-2 PUFFS
     Dates: start: 20101001, end: 20120327
  2. XOPENEX HFA [Suspect]
     Indication: COUGH
     Dosage: 1-2 PUFFS
     Dates: start: 20101001, end: 20120327

REACTIONS (2)
  - ANGER [None]
  - AGGRESSION [None]
